FAERS Safety Report 5357491-1 (Version None)
Quarter: 2007Q2

REPORT INFORMATION
  Report Type: 
  Country: None (occurrence: None)
  Receive Date: 20070614
  Receipt Date: 20070605
  Transmission Date: 20071010
  Serious: Yes (Death, Hospitalization)
  Sender: FDA-Public Use
  Company Number: A0653472A

PATIENT
  Sex: Male

DRUGS (1)
  1. BEXXAR [Suspect]
     Indication: NON-HODGKIN'S LYMPHOMA
     Route: 042

REACTIONS (3)
  - CARDIAC FAILURE CONGESTIVE [None]
  - DEATH [None]
  - DISEASE PROGRESSION [None]
